FAERS Safety Report 8985463 (Version 1)
Quarter: 2012Q4

REPORT INFORMATION
  Report Type: 
  Country: CO (occurrence: CO)
  Receive Date: 20121226
  Receipt Date: 20121226
  Transmission Date: 20130627
  Serious: Yes (Hospitalization, Other)
  Sender: FDA-Public Use
  Company Number: CO-PFIZER INC-2012324924

PATIENT
  Age: 6 Year
  Sex: Female

DRUGS (10)
  1. GENOTROPIN [Suspect]
     Indication: RESTLESSNESS
     Dosage: 0.8 mg, UNK
     Route: 058
     Dates: start: 201203
  2. GENOTROPIN [Suspect]
     Indication: SMALL FOR GESTATIONAL AGE
  3. MONTELUKAST [Concomitant]
     Indication: PLEURAL EFFUSION
     Dosage: one tablet at night
     Route: 048
     Dates: start: 2010
  4. SALBUTAMOL [Concomitant]
     Indication: PLEURAL EFFUSION
     Dosage: one puff when she runs or presents a crisis
     Dates: start: 2010
  5. BECLOMETASONE [Concomitant]
     Indication: PLEURAL EFFUSION
     Dosage: 1 puff when she presents a crisis
  6. DOMPERIDONE [Concomitant]
     Dosage: 10 mg, half tablet three times per day
  7. HYDROCORTISON [Concomitant]
     Indication: URTICARIA
     Dosage: 1.0 %, UNK
     Dates: start: 2010
  8. SALMETEROL XINAFOATE/FLUTICASONE PROPIONATE [Concomitant]
     Indication: LUNG DISORDER
     Dosage: 1 puff every 12 hours
  9. PEDIASURE [Concomitant]
     Dosage: UNK
     Dates: start: 20121129
  10. ZINC [Concomitant]
     Indication: WEIGHT BELOW NORMAL
     Dosage: 5 cm every 12 hours
     Dates: start: 20121129

REACTIONS (4)
  - Pyrexia [Unknown]
  - Renal tubular acidosis [Unknown]
  - Gastritis [Not Recovered/Not Resolved]
  - Headache [Recovered/Resolved]
